FAERS Safety Report 26189219 (Version 1)
Quarter: 2025Q4

REPORT INFORMATION
  Report Type: Spontaneous
  Country: GB (occurrence: None)
  Receive Date: 20251223
  Receipt Date: 20251223
  Transmission Date: 20260117
  Serious: Yes (Other)
  Sender: ORGANON
  Company Number: None

PATIENT
  Age: 56 Year
  Sex: Female
  Weight: 103 kg

DRUGS (14)
  1. MIRTAZAPINE [Suspect]
     Active Substance: MIRTAZAPINE
     Dosage: ONE NACTE15MG/ML (ORAL SOLUTION SUGAR FREE)
     Route: 061
     Dates: start: 20250113
  2. OLODATEROL HYDROCHLORIDE\TIOTROPIUM BROMIDE MONOHYDRATE [Concomitant]
     Active Substance: OLODATEROL HYDROCHLORIDE\TIOTROPIUM BROMIDE MONOHYDRATE
     Indication: Ill-defined disorder
     Dosage: TWO PUFFS ONCE DAILY (CHECK FULL PACK REQUIRED)
     Dates: start: 20250916, end: 20251016
  3. TRIMETHOPRIM [Concomitant]
     Active Substance: TRIMETHOPRIM
     Indication: Ill-defined disorder
     Dosage: TAKE ONE TWICE A DAY
     Dates: start: 20251011, end: 20251014
  4. PROCHLORPERAZINE [Concomitant]
     Active Substance: PROCHLORPERAZINE
     Indication: Ill-defined disorder
     Dosage: USE UP TO TWICE DAILY
     Dates: start: 20251106, end: 20251116
  5. UMECLIDINIUM BROMIDE\VILANTEROL TRIFENATATE [Concomitant]
     Active Substance: UMECLIDINIUM BROMIDE\VILANTEROL TRIFENATATE
     Indication: Ill-defined disorder
     Dosage: INHALE 1 DOSE DAILY
     Dates: start: 20251029, end: 20251128
  6. AMOXICILLIN [Concomitant]
     Active Substance: AMOXICILLIN
     Indication: Ill-defined disorder
     Dosage: TAKE ONE CAPSULE 3 TIMES A DAY.
     Dates: start: 20251211
  7. CLONAZEPAM [Concomitant]
     Active Substance: CLONAZEPAM
     Indication: Ill-defined disorder
     Dosage: TAKE ONE AT NIGHT
     Dates: start: 20240516
  8. OMEPRAZOLE [Concomitant]
     Active Substance: OMEPRAZOLE
     Indication: Ill-defined disorder
     Dosage: TAKE ONE TWICE DAILY
     Dates: start: 20240516
  9. PREGABALIN [Concomitant]
     Active Substance: PREGABALIN
     Indication: Ill-defined disorder
     Dosage: TAKE ONE TWICE DAILY
     Dates: start: 20241126
  10. SERTRALINE [Concomitant]
     Active Substance: SERTRALINE HYDROCHLORIDE
     Indication: Ill-defined disorder
     Dosage: TAKE 2 TABLETS ONCE DAILY
     Dates: start: 20241126
  11. ALBUTEROL [Concomitant]
     Active Substance: ALBUTEROL
     Indication: Ill-defined disorder
     Dosage: INHALE 2 DOSES AS NEEDED
  12. LEVOTHYROXINE [Concomitant]
     Active Substance: LEVOTHYROXINE
     Indication: Ill-defined disorder
     Dosage: TAKE ONE EACH MORNING
     Dates: start: 20250512
  13. TIOTROPIUM [Concomitant]
     Active Substance: TIOTROPIUM
     Indication: Ill-defined disorder
     Dosage: TWO PUFFS ONCE DAILY
     Dates: start: 20250916
  14. FOLIC ACID [Concomitant]
     Active Substance: FOLIC ACID
     Indication: Ill-defined disorder
     Dosage: TAKE ONE DAILY
     Dates: start: 20251121

REACTIONS (1)
  - Restless legs syndrome [Recovering/Resolving]
